FAERS Safety Report 21312462 (Version 1)
Quarter: 2022Q3

REPORT INFORMATION
  Report Type: Spontaneous
  Country: US (occurrence: None)
  Receive Date: 20220909
  Receipt Date: 20220909
  Transmission Date: 20221027
  Serious: No
  Sender: FDA-Public Use
  Company Number: US-ARIS GLOBAL-202206-1090

PATIENT
  Age: 73 Year
  Sex: Female

DRUGS (8)
  1. OXERVATE [Suspect]
     Active Substance: CENEGERMIN-BKBJ
     Indication: Neurotrophic keratopathy
     Route: 047
     Dates: start: 20220607
  2. VITAMINS [Concomitant]
     Active Substance: VITAMINS
     Dosage: DAILY
  3. TYLENOL [Concomitant]
     Active Substance: ACETAMINOPHEN
     Dosage: SUSTAINED ACTION FOR 8 HOURS
  4. ACETAMINOPHEN\OXYCODONE HYDROCHLORIDE [Concomitant]
     Active Substance: ACETAMINOPHEN\OXYCODONE HYDROCHLORIDE
  5. MELOXICAM [Concomitant]
     Active Substance: MELOXICAM
  6. PREGABALIN [Concomitant]
     Active Substance: PREGABALIN
  7. LATANOPROST [Concomitant]
     Active Substance: LATANOPROST
  8. COLD AND FLU [Concomitant]
     Active Substance: ACETAMINOPHEN\CHLORPHENIRAMINE MALEATE

REACTIONS (5)
  - Eye pain [Not Recovered/Not Resolved]
  - Ocular discomfort [Unknown]
  - Device difficult to use [Unknown]
  - Product dose omission issue [Unknown]
  - Drug ineffective [Not Recovered/Not Resolved]

NARRATIVE: CASE EVENT DATE: 20220608
